FAERS Safety Report 8840291 (Version 2)
Quarter: 2012Q4

REPORT INFORMATION
  Report Type: Report from Study
  Country: US (occurrence: US)
  Receive Date: 20121015
  Receipt Date: 20121105
  Transmission Date: 20130627
  Serious: Yes (Other)
  Sender: FDA-Public Use
  Company Number: US-JNJFOC-20121005185

PATIENT
  Age: 34 None
  Sex: Female
  Weight: 81.65 kg

DRUGS (7)
  1. REMICADE [Suspect]
     Indication: CROHN^S DISEASE
     Route: 042
  2. REMICADE [Suspect]
     Indication: CROHN^S DISEASE
     Route: 042
     Dates: start: 20120924
  3. REMICADE [Suspect]
     Indication: CROHN^S DISEASE
     Dosage: postponed since JUL-2012
     Route: 042
     Dates: start: 201011
  4. VITAMIN D3 [Concomitant]
     Indication: IMMUNE SYSTEM DISORDER
     Route: 065
  5. VALTREX [Concomitant]
     Indication: HERPES SIMPLEX
     Route: 065
  6. FLONASE [Concomitant]
     Indication: SINUSITIS
     Route: 065
  7. WELLBUTRIN [Concomitant]
     Indication: DEPRESSION
     Route: 065

REACTIONS (2)
  - Arthropod bite [Recovered/Resolved]
  - Infection [Recovered/Resolved]
